FAERS Safety Report 19472582 (Version 1)
Quarter: 2021Q2

REPORT INFORMATION
  Report Type: Spontaneous
  Country: GB (occurrence: GB)
  Receive Date: 20210629
  Receipt Date: 20210629
  Transmission Date: 20210717
  Serious: Yes (Life-Threatening, Disabling)
  Sender: FDA-Public Use
  Company Number: GB-JNJFOC-20210644140

PATIENT
  Age: 27 Year
  Sex: Male
  Weight: 88.9 kg

DRUGS (10)
  1. HALDOL [Suspect]
     Active Substance: HALOPERIDOL
     Indication: SCHIZOPHRENIA
     Route: 065
     Dates: start: 20200112, end: 202006
  2. OLANZAPINE. [Suspect]
     Active Substance: OLANZAPINE
     Indication: SCHIZOPHRENIA
     Route: 065
     Dates: start: 201904, end: 201905
  3. RISPERDAL [Suspect]
     Active Substance: RISPERIDONE
     Indication: SCHIZOPHRENIA
     Route: 065
     Dates: start: 20200112, end: 202006
  4. ZUCLOPENTHIXOL DECANOATE [Suspect]
     Active Substance: ZUCLOPENTHIXOL DECANOATE
     Indication: SCHIZOPHRENIA
     Route: 065
     Dates: start: 20200112, end: 202006
  5. COCODAMOL [Concomitant]
     Active Substance: ACETAMINOPHEN\CODEINE PHOSPHATE
     Indication: LOWER LIMB FRACTURE
     Route: 065
     Dates: start: 202004, end: 202010
  6. ARIPIPRAZOLE. [Suspect]
     Active Substance: ARIPIPRAZOLE
     Route: 065
     Dates: start: 20200112, end: 202006
  7. ZUCLOPENTHIXOL DECANOATE [Suspect]
     Active Substance: ZUCLOPENTHIXOL DECANOATE
     Route: 065
     Dates: start: 20201008, end: 20210302
  8. RISPERDAL [Suspect]
     Active Substance: RISPERIDONE
     Route: 065
     Dates: start: 20201008, end: 20210302
  9. ARIPIPRAZOLE. [Suspect]
     Active Substance: ARIPIPRAZOLE
     Indication: SCHIZOPHRENIA
     Route: 065
     Dates: start: 20201008, end: 20210302
  10. HALDOL [Suspect]
     Active Substance: HALOPERIDOL
     Route: 065
     Dates: start: 20201008, end: 20210302

REACTIONS (13)
  - Nightmare [Not Recovered/Not Resolved]
  - Sexual dysfunction [Recovering/Resolving]
  - Confusional state [Recovering/Resolving]
  - Extrapyramidal disorder [Recovering/Resolving]
  - Disturbance in attention [Recovering/Resolving]
  - Coordination abnormal [Recovering/Resolving]
  - Vomiting [Recovering/Resolving]
  - Parkinsonian gait [Recovering/Resolving]
  - Amnesia [Recovering/Resolving]
  - Weight increased [Recovering/Resolving]
  - Pyrexia [Recovering/Resolving]
  - Syncope [Recovering/Resolving]
  - Tardive dyskinesia [Recovering/Resolving]

NARRATIVE: CASE EVENT DATE: 20200112
